FAERS Safety Report 26205503 (Version 1)
Quarter: 2025Q4

REPORT INFORMATION
  Report Type: Spontaneous
  Country: US (occurrence: US)
  Receive Date: 20251228
  Receipt Date: 20251228
  Transmission Date: 20260117
  Serious: Yes (Other)
  Sender: JOHNSON AND JOHNSON
  Company Number: US-MLMSERVICE-20251212-PI746493-00271-1

PATIENT
  Age: 70 Year
  Sex: Female

DRUGS (8)
  1. GUSELKUMAB [Suspect]
     Active Substance: GUSELKUMAB
     Indication: Pyoderma gangrenosum
  2. GUSELKUMAB [Suspect]
     Active Substance: GUSELKUMAB
  3. GUSELKUMAB [Suspect]
     Active Substance: GUSELKUMAB
  4. GUSELKUMAB [Suspect]
     Active Substance: GUSELKUMAB
  5. PREDNISONE [Suspect]
     Active Substance: PREDNISONE
     Indication: Pyoderma gangrenosum
     Dosage: OVER 4 MONTHS
  6. PREDNISONE [Suspect]
     Active Substance: PREDNISONE
     Dosage: PROLONGED PREDNISONE THERAPY
  7. CYCLOSPORINE [Suspect]
     Active Substance: CYCLOSPORINE
     Indication: Pyoderma gangrenosum
     Dosage: OVER 4 MONTHS [EVERY NIGHT AT BEDTIME]
  8. TRIAMCINOLONE [Suspect]
     Active Substance: TRIAMCINOLONE
     Indication: Pyoderma gangrenosum
     Route: 026

REACTIONS (2)
  - Kaposi^s sarcoma [Recovered/Resolved]
  - Off label use [Unknown]
